FAERS Safety Report 20888983 (Version 1)
Quarter: 2022Q2

REPORT INFORMATION
  Report Type: Spontaneous
  Country: US (occurrence: US)
  Receive Date: 20220530
  Receipt Date: 20220530
  Transmission Date: 20220721
  Serious: Yes (Hospitalization, Congenital Anomaly, Other)
  Sender: FDA-Public Use
  Company Number: US-CIPLA (EU) LIMITED-2022US03316

PATIENT

DRUGS (3)
  1. ESCITALOPRAM [Suspect]
     Active Substance: ESCITALOPRAM OXALATE
     Dosage: UNK
     Route: 064
  2. ALBUTEROL [Suspect]
     Active Substance: ALBUTEROL
     Dosage: UNK
     Route: 064
  3. LABETALOL [Suspect]
     Active Substance: LABETALOL\LABETALOL HYDROCHLORIDE
     Dosage: UNK
     Route: 064

REACTIONS (12)
  - Premature baby [Unknown]
  - Bladder agenesis [Unknown]
  - Ectopic ureter [Unknown]
  - Renal dysplasia [Unknown]
  - Anal atresia [Unknown]
  - Penoscrotal transposition [Unknown]
  - Anorectal malformation [Unknown]
  - Anuria [Unknown]
  - Penile curvature [Unknown]
  - Perineal fistula [Unknown]
  - Respiratory distress [Unknown]
  - Foetal exposure during pregnancy [Unknown]
